FAERS Safety Report 19188691 (Version 2)
Quarter: 2021Q3

REPORT INFORMATION
  Report Type: Report from Study
  Country: None (occurrence: US)
  Receive Date: 20210427
  Receipt Date: 20210706
  Transmission Date: 20211014
  Serious: Yes (Other)
  Sender: FDA-Public Use
  Company Number: US-ABBVIE-21K-163-3873312-00

PATIENT
  Sex: Male
  Weight: 87.62 kg

DRUGS (9)
  1. SERTRALINE [Concomitant]
     Active Substance: SERTRALINE HYDROCHLORIDE
     Indication: HEADACHE
  2. TOPIRAMATE. [Concomitant]
     Active Substance: TOPIRAMATE
     Indication: HEADACHE
  3. HUMIRA [Suspect]
     Active Substance: ADALIMUMAB
     Indication: HIDRADENITIS
     Route: 058
     Dates: start: 2020
  4. LISINOPRIL. [Concomitant]
     Active Substance: LISINOPRIL
     Indication: BLOOD PRESSURE MEASUREMENT
  5. ROSUVASTATIN. [Concomitant]
     Active Substance: ROSUVASTATIN
     Indication: BLOOD CHOLESTEROL
  6. XALECIN [Concomitant]
     Indication: CARDIAC DISORDER
  7. RISPERIDONE. [Concomitant]
     Active Substance: RISPERIDONE
     Indication: CARDIAC DISORDER
  8. GLIMEPIRIDE. [Concomitant]
     Active Substance: GLIMEPIRIDE
     Indication: DIABETES MELLITUS
  9. MEPROBAMATE. [Concomitant]
     Active Substance: MEPROBAMATE
     Indication: CARDIAC DISORDER

REACTIONS (2)
  - Skin cancer [Recovering/Resolving]
  - Cyst [Recovering/Resolving]
